FAERS Safety Report 8508148-7 (Version None)
Quarter: 2012Q2

REPORT INFORMATION
  Report Type: 
  Country: None (occurrence: None)
  Receive Date: 20120405
  Receipt Date: 20090819
  Transmission Date: 20120825
  Serious: Yes (Other)
  Sender: FDA-Public Use
  Company Number: PHEH2009US09882

PATIENT
  Sex: Female

DRUGS (1)
  1. RECLAST [Suspect]
     Dosage: INFUSION
     Dates: start: 20090812

REACTIONS (2)
  - JOINT SWELLING [None]
  - GAIT DISTURBANCE [None]
